FAERS Safety Report 8401416 (Version 3)
Quarter: 2012Q4

REPORT INFORMATION
  Report Type: Report from Study
  Country: US (occurrence: US)
  Receive Date: 20120210
  Receipt Date: 20120913
  Transmission Date: 20130627
  Serious: Yes (Hospitalization)
  Sender: FDA-Public Use
  Company Number: US-UCBSA-050718

PATIENT
  Age: 32 Year
  Sex: Female
  Weight: 63.59 kg

DRUGS (15)
  1. CIMZIA [Suspect]
     Indication: CROHN^S DISEASE
     Route: 058
     Dates: start: 20100727, end: 2012
  2. MAALOX [Concomitant]
     Dosage: AS NECESSARY
     Dates: start: 20110702
  3. FLEXERIL [Concomitant]
     Dates: start: 20110702
  4. PERCOCET [Concomitant]
     Indication: PAIN
     Dosage: 5/325 1-2, AS NECESSARY
     Dates: start: 20110702
  5. AVELOX [Concomitant]
     Dates: start: 20110702
  6. PENTASA [Concomitant]
     Indication: CROHN^S DISEASE
     Dates: start: 201006
  7. PREDNISONE [Concomitant]
     Indication: CROHN^S DISEASE
     Dates: start: 199811
  8. CODEINE [Concomitant]
  9. DILAUDID [Concomitant]
     Dosage: 4 MG
  10. LOPERAMIDE [Concomitant]
  11. REGLAN [Concomitant]
  12. K DUR [Concomitant]
  13. PHENERGAN [Concomitant]
  14. TYLENOL [Concomitant]
  15. B12 [Concomitant]

REACTIONS (1)
  - Urinary tract infection [Recovered/Resolved]
